FAERS Safety Report 8888225 (Version 3)
Quarter: 2012Q4

REPORT INFORMATION
  Report Type: Report from Study
  Country: DE (occurrence: DE)
  Receive Date: 20121106
  Receipt Date: 20121126
  Transmission Date: 20130627
  Serious: Yes (Death, Hospitalization)
  Sender: FDA-Public Use
  Company Number: DE-ACTELION-A-US2012-73937

PATIENT
  Age: 55 Year
  Sex: Female

DRUGS (1)
  1. VENTAVIS [Suspect]
     Indication: PULMONARY ARTERIAL HYPERTENSION
     Dosage: 2.5 mcg, q4hrs
     Route: 055
     Dates: start: 20110920, end: 20121025

REACTIONS (4)
  - Pulmonary arterial hypertension [Fatal]
  - Sepsis [Unknown]
  - Skin ulcer [Unknown]
  - Infection [Unknown]
